FAERS Safety Report 10452219 (Version 1)
Quarter: 2014Q3

REPORT INFORMATION
  Report Type: Spontaneous
  Country: IT (occurrence: IT)
  Receive Date: 20140915
  Receipt Date: 20140915
  Transmission Date: 20150326
  Serious: Yes (Hospitalization, Other)
  Sender: FDA-Public Use
  Company Number: PHHY2014IT117625

PATIENT
  Age: 31 Year
  Sex: Male

DRUGS (5)
  1. RISPERIDONE. [Suspect]
     Active Substance: RISPERIDONE
     Indication: SCHIZOPHRENIA, UNDIFFERENTIATED TYPE
     Dosage: 6 MG, PER DAY
  2. VALPROATE [Concomitant]
     Active Substance: VALPROATE SODIUM
     Indication: CONVULSION
     Dosage: 500 MG, BID
  3. CLOZAPINE. [Suspect]
     Active Substance: CLOZAPINE
     Dosage: 175 MG (75MG IN THE MORNING AND 100 MG AT BEDTIME)
  4. CLOZAPINE. [Suspect]
     Active Substance: CLOZAPINE
     Indication: SCHIZOPHRENIA, UNDIFFERENTIATED TYPE
     Dosage: 12.5 MG, UNK
  5. HALOPERIDOL. [Suspect]
     Active Substance: HALOPERIDOL
     Indication: SCHIZOPHRENIA, UNDIFFERENTIATED TYPE
     Dosage: 6 MG, DAY

REACTIONS (9)
  - Pyrexia [Recovered/Resolved]
  - Dyspnoea [Recovered/Resolved]
  - Condition aggravated [Recovered/Resolved]
  - Chest pain [Recovered/Resolved]
  - Gastrointestinal disorder [Recovered/Resolved]
  - Extrapyramidal disorder [Unknown]
  - Pericarditis [Recovered/Resolved]
  - Drug ineffective [Unknown]
  - Tachycardia [Recovered/Resolved]
